FAERS Safety Report 6218966-6 (Version None)
Quarter: 2009Q2

REPORT INFORMATION
  Report Type: 
  Country: None (occurrence: None)
  Receive Date: 20090608
  Receipt Date: 20090528
  Transmission Date: 20091009
  Serious: Yes (Hospitalization, Other)
  Sender: FDA-Public Use
  Company Number: PHHY2009BR20937

PATIENT
  Age: 72 Year
  Sex: Female
  Weight: 64 kg

DRUGS (4)
  1. EXFORGE [Suspect]
     Indication: HYPERTENSION
     Dosage: 1 TABLET /DAY
     Route: 048
     Dates: start: 20081001
  2. AMARYL [Concomitant]
     Indication: DIABETES MELLITUS
     Dosage: 1 TABLET MORNING + 1/2 TABLET AFTERNOON
     Dates: start: 20081001
  3. AAS [Concomitant]
     Indication: ANTICOAGULANT THERAPY
     Dosage: UNK
  4. CITONEURON [Concomitant]

REACTIONS (4)
  - BRADYCARDIA [None]
  - CARDIAC PACEMAKER INSERTION [None]
  - PNEUMONIA [None]
  - TACHYCARDIA [None]
